FAERS Safety Report 5180028-7 (Version None)
Quarter: 2006Q4

REPORT INFORMATION
  Report Type: 
  Country: None (occurrence: None)
  Receive Date: 20061219
  Receipt Date: 20060921
  Transmission Date: 20070319
  Serious: No
  Sender: FDA-Public Use
  Company Number: US-AMGEN-KDL194423

PATIENT
  Sex: Female

DRUGS (2)
  1. ENBREL [Suspect]
     Indication: PSORIATIC ARTHROPATHY
     Route: 058
     Dates: start: 19981201
  2. ENBREL [Suspect]
     Indication: PSORIASIS

REACTIONS (9)
  - ARTHRALGIA [None]
  - BRONCHITIS [None]
  - DEPRESSION [None]
  - FLUSHING [None]
  - JOINT SWELLING [None]
  - NASOPHARYNGITIS [None]
  - PAIN IN EXTREMITY [None]
  - PYREXIA [None]
  - TOE DEFORMITY [None]
